FAERS Safety Report 8074772-1 (Version None)
Quarter: 2012Q1

REPORT INFORMATION
  Report Type: 
  Country: None (occurrence: None)
  Receive Date: 20120126
  Receipt Date: 20120124
  Transmission Date: 20120608
  Serious: No
  Sender: FDA-Public Use
  Company Number: US-PFIZER INC-2012020699

PATIENT
  Sex: Female
  Weight: 49.9 kg

DRUGS (8)
  1. CHANTIX [Suspect]
     Indication: SMOKING CESSATION THERAPY
     Dosage: 0.5 MG, DAILY
     Route: 048
     Dates: start: 20120114, end: 20120101
  2. HYDROCHLOROTHIAZIDE [Concomitant]
     Indication: HYPERTENSION
     Dosage: 25 MG, DAILY
  3. ASPIRIN [Concomitant]
     Indication: PROPHYLAXIS
     Dosage: 81 MG, DAILY
  4. CHANTIX [Suspect]
     Dosage: 0.5 MG, 2X/DAY
     Route: 048
     Dates: start: 20120101, end: 20120120
  5. HYDROCODONE BITARTRATE AND IBUPROFEN [Concomitant]
     Indication: PAIN
     Dosage: 7.5/200 MG, 3X/DAY
     Dates: start: 20120101, end: 20120101
  6. HYDROCODONE BITARTRATE AND IBUPROFEN [Concomitant]
     Dosage: 7.5/200 MG, 2X/DAY
     Dates: start: 20120101
  7. CHANTIX [Suspect]
     Dosage: 1 MG, 2X/DAY
     Route: 048
     Dates: start: 20120121
  8. HYDRALAZINE [Concomitant]
     Indication: HYPERTENSION
     Dosage: 25 MG, DAILY

REACTIONS (1)
  - NAUSEA [None]
